FAERS Safety Report 12392460 (Version 1)
Quarter: 2016Q2

REPORT INFORMATION
  Report Type: Spontaneous
  Country: US (occurrence: None)
  Receive Date: 20160520
  Receipt Date: 20160520
  Transmission Date: 20160815
  Serious: No
  Sender: FDA-Public Use
  Company Number: None

PATIENT
  Age: 85 Year
  Sex: Female

DRUGS (1)
  1. FORTEO [Suspect]
     Active Substance: TERIPARATIDE
     Indication: OSTEOPOROSIS
     Route: 058
     Dates: start: 20160315

REACTIONS (4)
  - Gastrooesophageal reflux disease [None]
  - Arthralgia [None]
  - Pharyngitis [None]
  - Injection site reaction [None]

NARRATIVE: CASE EVENT DATE: 20160509
